FAERS Safety Report 24419116 (Version 2)
Quarter: 2024Q4

REPORT INFORMATION
  Report Type: Report from Study
  Country: US (occurrence: US)
  Receive Date: 20241009
  Receipt Date: 20241018
  Transmission Date: 20250115
  Serious: No
  Sender: ROCHE
  Company Number: US-ROCHE-3415495

PATIENT
  Age: 49 Year
  Sex: Male

DRUGS (3)
  1. CATHFLO ACTIVASE [Suspect]
     Active Substance: ALTEPLASE
     Indication: Type 2 diabetes mellitus
     Dosage: AS NEEDED FOR CENTRAL VENOUS CATHETER OCCLUSION FOR PICC LINE OCCLUSION
     Route: 034
  2. CATHFLO ACTIVASE [Suspect]
     Active Substance: ALTEPLASE
     Indication: Pleural effusion
     Dosage: DATE OF SERVICE: 16/AUG/2023, 17/AUG/2023, 18/AUG/2023, 19/AUG/2023
     Route: 034
  3. CATHFLO ACTIVASE [Suspect]
     Active Substance: ALTEPLASE
     Indication: Skin ulcer

REACTIONS (3)
  - Off label use [Unknown]
  - No adverse event [Unknown]
  - Off label use [Unknown]
